FAERS Safety Report 5585639-2 (Version None)
Quarter: 2008Q1

REPORT INFORMATION
  Report Type: 
  Country: None (occurrence: None)
  Receive Date: 20080109
  Receipt Date: 20071207
  Transmission Date: 20080703
  Serious: No
  Sender: FDA-Public Use
  Company Number: US-BAYER-200712554BCC

PATIENT
  Age: 59 Year
  Sex: Female
  Weight: 59 kg

DRUGS (5)
  1. ALEVE [Suspect]
     Indication: BURNING SENSATION
     Dosage: TOTAL DAILY DOSE: 220 MG  UNIT DOSE: 220 MG
     Route: 048
     Dates: start: 20070807
  2. EFFEXOR [Concomitant]
  3. PREVACID [Concomitant]
  4. VITAMINS [Concomitant]
  5. TENORMIN [Concomitant]

REACTIONS (4)
  - BURNING SENSATION [None]
  - MUSCLE SWELLING [None]
  - MUSCLE TIGHTNESS [None]
  - RETCHING [None]
